FAERS Safety Report 8493615 (Version 11)
Quarter: 2013Q1

REPORT INFORMATION
  Report Type: Report from Study
  Country: GB (occurrence: GB)
  Receive Date: 20120404
  Receipt Date: 20130129
  Transmission Date: 20140127
  Serious: Yes (Hospitalization)
  Sender: FDA-Public Use
  Company Number: GB-NOVOPROD-348396

PATIENT
  Age: 72 Year
  Sex: Male
  Weight: 94 kg

DRUGS (23)
  1. LIRAGLUTIDE FLEXPEN [Suspect]
     Indication: OBESITY
     Dosage: 0.6 MG, QD
     Route: 058
     Dates: start: 20110723
  2. LIRAGLUTIDE FLEXPEN [Suspect]
     Indication: TYPE 2 DIABETES MELLITUS
     Dosage: 3.0 MG, QD
     Route: 058
     Dates: start: 20110819, end: 20120318
  3. LIRAGLUTIDE FLEXPEN [Suspect]
     Dosage: 3.0 MG, QD
     Dates: start: 20120330
  4. CLOPIDOGREL [Concomitant]
     Dosage: 75 MG, QD
     Dates: start: 20120406
  5. MORPHINE SULPHATE [Concomitant]
     Dosage: 10 MG, QD
     Dates: start: 20120403, end: 20120414
  6. CYCLIZINE [Concomitant]
     Dosage: 50 MG, QD
     Dates: start: 20120401, end: 20120408
  7. TRAMADOL [Concomitant]
     Dosage: 50 MG, QD
     Dates: start: 20120326, end: 20120414
  8. AMOXICILLIN\CLAVULANATE POTASSIUM [Concomitant]
     Dosage: 1500 MG, QD
     Dates: start: 20120412, end: 20120419
  9. AMOXICILLIN\CLAVULANATE POTASSIUM [Concomitant]
     Dosage: 750 MG, QD
     Dates: start: 20120420, end: 20120607
  10. CLAVULANIC ACID [Concomitant]
     Dosage: 375 MG, QD
     Dates: start: 20120412, end: 20120419
  11. CLAVULANIC ACID [Concomitant]
     Dosage: 375 MG, QD
     Dates: start: 20120420, end: 20120607
  12. PARACETAMOL [Concomitant]
     Dosage: 4000 MG, QD
     Dates: start: 20120325, end: 20120922
  13. LACTULOSE [Concomitant]
     Indication: CONSTIPATION
     Dosage: 20 ML, QD
     Dates: start: 20120326
  14. SENNA                              /00142201/ [Concomitant]
     Indication: CONSTIPATION
     Dosage: 7.5 MG, QD
     Dates: start: 20120326
  15. MACROGOL [Concomitant]
     Indication: CONSTIPATION
     Dosage: 2 SACHETS
     Dates: start: 20120331
  16. DALTEPARIN [Concomitant]
     Dosage: 15000 IU, QD
     Dates: start: 20120418, end: 20120419
  17. FLUCLOXACILLIN [Concomitant]
     Dosage: 8 G, QD
     Dates: start: 20120325, end: 20120330
  18. BENZYLPENICILLIN [Concomitant]
     Dosage: 4.8 G, QD
     Dates: start: 20120325, end: 20120330
  19. TAZOCIN [Concomitant]
     Dosage: 4.5 G, QD
     Dates: start: 20120330, end: 20120412
  20. LIDOCAINE [Concomitant]
     Dosage: 9 ML, QD
     Dates: start: 20120405, end: 20120405
  21. VISIPAQUE [Concomitant]
     Dosage: 235 ML, QD
     Dates: start: 20120405, end: 20120405
  22. HEPARIN [Concomitant]
     Dosage: 5000 IU, QD
     Dates: start: 20120405, end: 20120405
  23. MORPHINE [Concomitant]
     Dosage: 2.5 MG, QD
     Dates: start: 20120401, end: 20120401

REACTIONS (2)
  - Peripheral arterial occlusive disease [Recovering/Resolving]
  - Angioplasty [Recovered/Resolved]
